FAERS Safety Report 5234497-4 (Version None)
Quarter: 2007Q1

REPORT INFORMATION
  Report Type: 
  Country: None (occurrence: None)
  Receive Date: 20070208
  Receipt Date: 20070208
  Transmission Date: 20070707
  Serious: Yes (Disabling)
  Sender: FDA-Public Use
  Company Number: None

PATIENT
  Age: 74 Year
  Sex: Female
  Weight: 59 kg

DRUGS (2)
  1. MEPERIDINE HCL [Suspect]
     Indication: PAIN
     Dosage: 25-50 Q6H PRN IM
     Route: 030
     Dates: start: 20060827, end: 20060829
  2. ACETAMINOPHEN AND HYDROCODONE BITARTRATE [Suspect]
     Indication: PAIN
     Dosage: 1 TAB Q6H PRN PO
     Route: 048
     Dates: start: 20060827, end: 20060828

REACTIONS (8)
  - APNOEA [None]
  - CONFUSIONAL STATE [None]
  - DEHYDRATION [None]
  - DEPRESSED LEVEL OF CONSCIOUSNESS [None]
  - HYPOTENSION [None]
  - PAIN [None]
  - RESPIRATORY RATE DECREASED [None]
  - URINARY TRACT INFECTION [None]
